FAERS Safety Report 7553594-1 (Version None)
Quarter: 2011Q2

REPORT INFORMATION
  Report Type: 
  Country: None (occurrence: None)
  Receive Date: 20110614
  Receipt Date: 20110614
  Transmission Date: 20111010
  Serious: No
  Sender: FDA-Public Use
  Company Number: None

PATIENT
  Age: 41 Year
  Sex: Female

DRUGS (2)
  1. INVEGA [Suspect]
     Indication: DISEASE RECURRENCE
     Dosage: 1 DOSE
     Dates: start: 20110525, end: 20110525
  2. INVEGA [Suspect]
     Indication: MAJOR DEPRESSION
     Dosage: 1 DOSE
     Dates: start: 20110525, end: 20110525

REACTIONS (3)
  - ABDOMINAL PAIN UPPER [None]
  - SWOLLEN TONGUE [None]
  - DRUG HYPERSENSITIVITY [None]
